FAERS Safety Report 7794067-0 (Version None)
Quarter: 2011Q4

REPORT INFORMATION
  Report Type: 
  Country: None (occurrence: None)
  Receive Date: 20111004
  Receipt Date: 20110922
  Transmission Date: 20120403
  Serious: Yes (Other)
  Sender: FDA-Public Use
  Company Number: US-JNJFOC-20110910094

PATIENT
  Age: 32 Year
  Sex: Male

DRUGS (4)
  1. APRISO [Concomitant]
     Indication: COLITIS ULCERATIVE
     Route: 065
  2. MERCAPTOPURINE [Suspect]
     Indication: PRODUCT USED FOR UNKNOWN INDICATION
     Route: 065
     Dates: start: 20110601
  3. REMICADE [Suspect]
     Indication: COLITIS ULCERATIVE
     Route: 042
     Dates: start: 20110501, end: 20110101
  4. PREDNISONE [Concomitant]
     Indication: COLITIS ULCERATIVE
     Route: 065

REACTIONS (5)
  - ACNE [None]
  - RASH MACULO-PAPULAR [None]
  - JOINT SWELLING [None]
  - COLITIS ULCERATIVE [None]
  - ERYTHEMA NODOSUM [None]
